FAERS Safety Report 9335746 (Version 1)
Quarter: 2013Q2

REPORT INFORMATION
  Report Type: Spontaneous
  Country: US (occurrence: US)
  Receive Date: 20130606
  Receipt Date: 20130606
  Transmission Date: 20140414
  Serious: No
  Sender: FDA-Public Use
  Company Number: US-AMGEN-USASP2013024273

PATIENT
  Age: 57 Year
  Sex: Female

DRUGS (6)
  1. PROLIA [Suspect]
     Indication: OSTEOPOROSIS POSTMENOPAUSAL
     Dosage: UNK
     Dates: start: 201303
  2. CALCIUM [Concomitant]
  3. VITAMIN D                          /00107901/ [Concomitant]
     Dosage: UNK
     Dates: start: 201206
  4. ZOLOFT [Concomitant]
     Dosage: 100 MG, QD
  5. XANAX [Concomitant]
     Dosage: UNK UNK, AS NECESSARY
  6. AMBIEN [Concomitant]
     Dosage: UNK UNK, AS NECESSARY

REACTIONS (2)
  - Groin pain [Unknown]
  - Pain in extremity [Unknown]
